FAERS Safety Report 6736887-7 (Version None)
Quarter: 2010Q2

REPORT INFORMATION
  Report Type: 
  Country: None (occurrence: None)
  Receive Date: 20100521
  Receipt Date: 20100517
  Transmission Date: 20101027
  Serious: Yes (Death, Hospitalization)
  Sender: FDA-Public Use
  Company Number: US-CELGENEUS-163-21880-10042298

PATIENT
  Sex: Male

DRUGS (4)
  1. REVLIMID [Suspect]
     Indication: MULTIPLE MYELOMA
     Route: 048
     Dates: start: 20090511, end: 20090518
  2. DECADRON [Concomitant]
     Indication: MULTIPLE MYELOMA
     Route: 065
     Dates: start: 20090204, end: 20090225
  3. LASIX [Concomitant]
     Indication: SWELLING
     Dosage: 1-2
     Route: 065
     Dates: start: 20080919, end: 20090518
  4. NORCO [Concomitant]
     Indication: PAIN
     Route: 065
     Dates: start: 20080926, end: 20090518

REACTIONS (5)
  - DEHYDRATION [None]
  - METASTATIC MALIGNANT MELANOMA [None]
  - MULTIPLE MYELOMA [None]
  - PAIN [None]
  - RENAL FAILURE [None]
